FAERS Safety Report 8953660 (Version 1)
Quarter: 2012Q4

REPORT INFORMATION
  Report Type: Report from Study
  Country: US (occurrence: US)
  Receive Date: 20121206
  Receipt Date: 20121206
  Transmission Date: 20130627
  Serious: Yes (Hospitalization, Other)
  Sender: FDA-Public Use
  Company Number: US-US-EMD SERONO, INC.-7179181

PATIENT
  Sex: Female

DRUGS (1)
  1. REBIF [Suspect]
     Indication: MULTIPLE SCLEROSIS
     Dates: start: 20120210

REACTIONS (4)
  - Pelvic adhesions [Recovering/Resolving]
  - Convulsion [Not Recovered/Not Resolved]
  - Infection [Recovering/Resolving]
  - Multiple sclerosis relapse [Unknown]
